FAERS Safety Report 10891359 (Version 1)
Quarter: 2015Q1

REPORT INFORMATION
  Report Type: Spontaneous
  Country: GB (occurrence: GB)
  Receive Date: 20150306
  Receipt Date: 20150306
  Transmission Date: 20150721
  Serious: Yes (Disabling)
  Sender: FDA-Public Use
  Company Number: GB-ACTELION-A-CH2015-113795

PATIENT
  Age: 59 Year
  Sex: Female
  Weight: 57.6 kg

DRUGS (2)
  1. ZAVESCA [Suspect]
     Active Substance: MIGLUSTAT
     Dosage: 100 MG, QD
     Route: 048
     Dates: start: 2015, end: 2015
  2. ZAVESCA [Suspect]
     Active Substance: MIGLUSTAT
     Indication: NIEMANN-PICK DISEASE
     Dosage: 200 MG, TID
     Route: 048
     Dates: start: 20130201, end: 20140226

REACTIONS (9)
  - Fall [Recovered/Resolved]
  - Muscular weakness [Recovered/Resolved]
  - Coordination abnormal [Recovered/Resolved]
  - Tremor [Recovered/Resolved]
  - Muscle spasms [Recovered/Resolved]
  - Neuralgia [Recovered/Resolved]
  - Drug intolerance [Unknown]
  - Weight decreased [Recovered/Resolved]
  - Amnesia [Recovered/Resolved]

NARRATIVE: CASE EVENT DATE: 20130322
